FAERS Safety Report 12183145 (Version 1)
Quarter: 2016Q1

REPORT INFORMATION
  Report Type: Spontaneous
  Country: US (occurrence: None)
  Receive Date: 20160315
  Receipt Date: 20160315
  Transmission Date: 20160526
  Serious: No
  Sender: FDA-Public Use
  Company Number: None

PATIENT
  Age: 58 Year
  Sex: Female
  Weight: 86.18 kg

DRUGS (9)
  1. CALCIUIM W VITAMIN D [Concomitant]
  2. MULTI VITAMIN [Concomitant]
     Active Substance: VITAMINS
  3. HYDROCHLOROTHIAZIDE. [Concomitant]
     Active Substance: HYDROCHLOROTHIAZIDE
  4. COPAXONE [Suspect]
     Active Substance: GLATIRAMER ACETATE
     Indication: MULTIPLE SCLEROSIS
     Dosage: INJECTION, 3 TIMES A WEEK, GIVEN INTO/UNDER THE SKIN
  5. COPAXONE [Suspect]
     Active Substance: GLATIRAMER ACETATE
     Indication: MULTIPLE SCLEROSIS
     Dosage: INJECTION, 3 TIMES A WEEK, GIVEN INTO/UNDER THE SKIN
  6. METOPROLOL. [Concomitant]
     Active Substance: METOPROLOL
  7. COPAXONE [Concomitant]
     Active Substance: GLATIRAMER ACETATE
  8. AMLODIPINE BESYLATE. [Concomitant]
     Active Substance: AMLODIPINE BESYLATE
  9. SERTRALINE [Concomitant]
     Active Substance: SERTRALINE HYDROCHLORIDE

REACTIONS (3)
  - Angioedema [None]
  - Loss of consciousness [None]
  - Dyspnoea [None]

NARRATIVE: CASE EVENT DATE: 20160128
